FAERS Safety Report 21139309 (Version 1)
Quarter: 2022Q3

REPORT INFORMATION
  Report Type: Spontaneous
  Country: CN (occurrence: CN)
  Receive Date: 20220727
  Receipt Date: 20220727
  Transmission Date: 20221027
  Serious: Yes (Hospitalization)
  Sender: FDA-Public Use
  Company Number: CN-PFIZER INC-PV202200028923

PATIENT
  Age: 61 Year
  Sex: Male
  Weight: 1 kg

DRUGS (14)
  1. CEFOPERAZONE SODIUM\SULBACTAM SODIUM [Suspect]
     Active Substance: CEFOPERAZONE SODIUM\SULBACTAM SODIUM
     Indication: Septic shock
     Dosage: 3 G, 3X/DAY
     Route: 041
     Dates: start: 20220603, end: 20220607
  2. CEFOPERAZONE SODIUM\SULBACTAM SODIUM [Suspect]
     Active Substance: CEFOPERAZONE SODIUM\SULBACTAM SODIUM
     Indication: Toxic shock syndrome
  3. CEFOPERAZONE SODIUM\SULBACTAM SODIUM [Suspect]
     Active Substance: CEFOPERAZONE SODIUM\SULBACTAM SODIUM
     Indication: Acute kidney injury
  4. CEFOPERAZONE SODIUM\SULBACTAM SODIUM [Suspect]
     Active Substance: CEFOPERAZONE SODIUM\SULBACTAM SODIUM
     Indication: Anti-infective therapy
  5. TYGACIL [Suspect]
     Active Substance: TIGECYCLINE
     Indication: Septic shock
     Dosage: 100 MG, 2X/DAY
     Route: 041
     Dates: start: 20220603, end: 20220610
  6. TYGACIL [Suspect]
     Active Substance: TIGECYCLINE
     Indication: Toxic shock syndrome
     Dosage: 50 MG, 2X/DAY
     Route: 041
     Dates: start: 20220610
  7. TYGACIL [Suspect]
     Active Substance: TIGECYCLINE
     Indication: Acute kidney injury
  8. TYGACIL [Suspect]
     Active Substance: TIGECYCLINE
     Indication: Anti-infective therapy
  9. FLUCONAZOLE [Suspect]
     Active Substance: FLUCONAZOLE
     Indication: Septic shock
     Dosage: 0.4 G, 1X/DAY
     Route: 041
     Dates: start: 20220603, end: 20220607
  10. FLUCONAZOLE [Suspect]
     Active Substance: FLUCONAZOLE
     Indication: Toxic shock syndrome
  11. FLUCONAZOLE [Suspect]
     Active Substance: FLUCONAZOLE
     Indication: Acute kidney injury
  12. FLUCONAZOLE [Suspect]
     Active Substance: FLUCONAZOLE
     Indication: Anti-infective therapy
  13. SODIUM CHLORIDE [Concomitant]
     Active Substance: SODIUM CHLORIDE
     Dosage: 100 ML, 3X/DAY
     Route: 041
     Dates: start: 20220603, end: 20220607
  14. SODIUM CHLORIDE [Concomitant]
     Active Substance: SODIUM CHLORIDE
     Dosage: 100 ML, 2X/DAY
     Route: 041
     Dates: start: 20220603, end: 20220607

REACTIONS (4)
  - Coagulopathy [Recovering/Resolving]
  - Off label use [Unknown]
  - Off label use [Unknown]
  - Product use issue [Unknown]

NARRATIVE: CASE EVENT DATE: 20220603
